FAERS Safety Report 7180281-4 (Version None)
Quarter: 2010Q4

REPORT INFORMATION
  Report Type: 
  Country: None (occurrence: None)
  Receive Date: 20101221
  Receipt Date: 20101214
  Transmission Date: 20110411
  Serious: Yes (Hospitalization, Other)
  Sender: FDA-Public Use
  Company Number: US-US-EMD SERONO, INC.-233890J09USA

PATIENT
  Sex: Female
  Weight: 82 kg

DRUGS (3)
  1. REBIF [Suspect]
     Indication: MULTIPLE SCLEROSIS
     Route: 058
     Dates: start: 20060602
  2. NEURONTIN [Concomitant]
     Indication: MULTIPLE SCLEROSIS
  3. HIGH BLOOD PRESSURE MEDICATION [Concomitant]
     Indication: HYPERTENSION

REACTIONS (8)
  - HAEMATOCRIT ABNORMAL [None]
  - INSOMNIA [None]
  - NIGHT SWEATS [None]
  - OPERATIVE HAEMORRHAGE [None]
  - PAIN [None]
  - PAIN IN EXTREMITY [None]
  - SPONDYLOLISTHESIS [None]
  - URINARY INCONTINENCE [None]
